FAERS Safety Report 24992185 (Version 1)
Quarter: 2025Q1

REPORT INFORMATION
  Report Type: Spontaneous
  Country: CN (occurrence: CN)
  Receive Date: 20250220
  Receipt Date: 20250220
  Transmission Date: 20250408
  Serious: Yes (Other)
  Sender: GE HEALTHCARE
  Company Number: CN-GE HEALTHCARE-2025CSU001737

PATIENT
  Age: 55 Year
  Sex: Female
  Weight: 59 kg

DRUGS (1)
  1. OMNIPAQUE [Suspect]
     Active Substance: IOHEXOL
     Indication: Skin test
     Route: 023
     Dates: start: 20250210, end: 20250210

REACTIONS (3)
  - Pallor [Recovering/Resolving]
  - Hyperhidrosis [Recovering/Resolving]
  - Nausea [Recovering/Resolving]

NARRATIVE: CASE EVENT DATE: 20250210
